FAERS Safety Report 8298320-6 (Version None)
Quarter: 2012Q2

REPORT INFORMATION
  Report Type: 
  Country: None (occurrence: None)
  Receive Date: 20120419
  Receipt Date: 20120413
  Transmission Date: 20120825
  Serious: Yes (Hospitalization)
  Sender: FDA-Public Use
  Company Number: PHHY2012AU011260

PATIENT
  Sex: Female

DRUGS (2)
  1. CLOZARIL [Suspect]
     Dosage: 600 MG, DAILY
     Dates: start: 20010924, end: 20120214
  2. CLOZARIL [Suspect]
     Dosage: 700 MG, DAILY
     Dates: start: 20120214

REACTIONS (2)
  - THINKING ABNORMAL [None]
  - SCHIZOPHRENIA [None]
